FAERS Safety Report 13917194 (Version 1)
Quarter: 2017Q3

REPORT INFORMATION
  Report Type: Spontaneous
  Country: GB (occurrence: GB)
  Receive Date: 20170829
  Receipt Date: 20170829
  Transmission Date: 20171127
  Serious: Yes (Death, Other)
  Sender: FDA-Public Use
  Company Number: GB-PFIZER INC-2017368408

PATIENT
  Age: 35 Year
  Sex: Male

DRUGS (5)
  1. METHADONE [Suspect]
     Active Substance: METHADONE HYDROCHLORIDE
     Dosage: UNK
  2. OLANZAPINE. [Suspect]
     Active Substance: OLANZAPINE
     Dosage: UNK
  3. DIAZEPAM. [Suspect]
     Active Substance: DIAZEPAM
     Dosage: UNK
  4. PREGABALIN. [Suspect]
     Active Substance: PREGABALIN
     Dosage: UNK
  5. CANNABIS [Suspect]
     Active Substance: CANNABIS SATIVA SUBSP. INDICA TOP
     Dosage: UNK

REACTIONS (3)
  - Prescription drug used without a prescription [Unknown]
  - Toxicity to various agents [Fatal]
  - Accidental overdose [Fatal]
